FAERS Safety Report 12329838 (Version 3)
Quarter: 2016Q2

REPORT INFORMATION
  Report Type: Report from Study
  Country: KR (occurrence: KR)
  Receive Date: 20160503
  Receipt Date: 20160511
  Transmission Date: 20160815
  Serious: Yes (Death, Hospitalization)
  Sender: FDA-Public Use
  Company Number: PHHY2016KR060477

PATIENT
  Age: 84 Year
  Sex: Male

DRUGS (1)
  1. GLIVEC [Suspect]
     Active Substance: IMATINIB MESYLATE
     Indication: CHRONIC MYELOID LEUKAEMIA
     Dosage: 400 MG, QD
     Route: 048
     Dates: start: 2009, end: 201504

REACTIONS (2)
  - Death [Fatal]
  - Dementia [Fatal]

NARRATIVE: CASE EVENT DATE: 201504
